FAERS Safety Report 9963620 (Version 1)
Quarter: 2014Q1

REPORT INFORMATION
  Report Type: Report from Study
  Country: US (occurrence: US)
  Receive Date: 20140305
  Receipt Date: 20140305
  Transmission Date: 20141002
  Serious: No
  Sender: FDA-Public Use
  Company Number: US-ABBVIE-13P-163-1117405-00

PATIENT
  Age: 68 Year
  Sex: Male

DRUGS (5)
  1. HUMIRA [Suspect]
     Indication: CROHN^S DISEASE
     Dates: start: 20130607
  2. AMLOBENAZEPRIL [Concomitant]
     Indication: HYPERTENSION
     Dosage: 10/20 MG
  3. HYDROCHLOROTHIAZIDE [Concomitant]
     Indication: HYPERTENSION
  4. PREDNISONE [Concomitant]
     Indication: CROHN^S DISEASE
  5. AZATHIOPRINE [Concomitant]
     Indication: CROHN^S DISEASE

REACTIONS (2)
  - Sensory disturbance [Not Recovered/Not Resolved]
  - Local swelling [Not Recovered/Not Resolved]
